FAERS Safety Report 24298485 (Version 3)
Quarter: 2024Q4

REPORT INFORMATION
  Report Type: Spontaneous
  Country: US (occurrence: US)
  Receive Date: 20240909
  Receipt Date: 20241113
  Transmission Date: 20250114
  Serious: Yes (Hospitalization, Other)
  Sender: JOHNSON AND JOHNSON
  Company Number: US-JNJFOC-20240916284

PATIENT
  Age: 76 Year
  Sex: Male

DRUGS (13)
  1. STELARA [Suspect]
     Active Substance: USTEKINUMAB
     Indication: Product used for unknown indication
     Route: 040
  2. STELARA [Suspect]
     Active Substance: USTEKINUMAB
     Dosage: NUMBER OF PREVIOUS DOSES: 18 APPROX, START DATE JAN-2021 APPROX?ADMINISTRATION IN LEFT LEG ON 07-MAR
     Route: 058
     Dates: start: 202101
  3. ALLOPURINOL [Concomitant]
     Active Substance: ALLOPURINOL
  4. SYNTHROID [Concomitant]
     Active Substance: LEVOTHYROXINE SODIUM
  5. LOVASTATIN [Concomitant]
     Active Substance: LOVASTATIN
  6. TEMAZEPAM [Concomitant]
     Active Substance: TEMAZEPAM
  7. TADALAFIL [Concomitant]
     Active Substance: TADALAFIL
  8. RAMIPRIL [Concomitant]
     Active Substance: RAMIPRIL
  9. OMEPRAZOLE [Concomitant]
     Active Substance: OMEPRAZOLE
  10. FOLIC ACID [Concomitant]
     Active Substance: FOLIC ACID
  11. PREGABALIN [Concomitant]
     Active Substance: PREGABALIN
  12. VITAMIN B12 [Concomitant]
     Active Substance: CYANOCOBALAMIN
  13. LYRICA [Concomitant]
     Active Substance: PREGABALIN

REACTIONS (3)
  - Pneumonia [Unknown]
  - Colitis [Unknown]
  - Product dose omission issue [Unknown]

NARRATIVE: CASE EVENT DATE: 20240828
